FAERS Safety Report 4378547-6 (Version None)
Quarter: 2004Q2

REPORT INFORMATION
  Report Type: 
  Country: None (occurrence: None)
  Receive Date: 20040616
  Receipt Date: 20040603
  Transmission Date: 20050107
  Serious: Yes (Hospitalization)
  Sender: FDA-Public Use
  Company Number: FR-GLAXOSMITHKLINE-B0334545B

PATIENT
  Sex: Female
  Weight: 2.7 kg

DRUGS (4)
  1. LAMICTAL [Suspect]
     Indication: EPILEPSY
     Dosage: 100MG TWICE PER DAY
     Dates: end: 20040405
  2. EPITOMAX [Suspect]
     Indication: EPILEPSY
     Dosage: 50MG PER DAY
     Dates: end: 20040405
  3. URBANYL [Suspect]
     Indication: EPILEPSY
     Dosage: 5MG PER DAY
     Dates: end: 20040405
  4. SAVARINE [Suspect]
     Dates: start: 20031101, end: 20031201

REACTIONS (5)
  - ANAEMIA NEONATAL [None]
  - DRUG EXPOSURE DURING PREGNANCY [None]
  - FEEDING PROBLEM IN NEWBORN [None]
  - PALLOR [None]
  - WEIGHT GAIN POOR [None]
